FAERS Safety Report 7989244-X (Version None)
Quarter: 2011Q4

REPORT INFORMATION
  Report Type: 
  Country: None (occurrence: None)
  Receive Date: 20111216
  Receipt Date: 20111216
  Transmission Date: 20120403
  Serious: Yes (Other)
  Sender: FDA-Public Use
  Company Number: None

PATIENT
  Age: 19 Year
  Sex: Female
  Weight: 72 kg

DRUGS (7)
  1. TNA [Concomitant]
  2. OLANZAPINE [Concomitant]
  3. ZOFRAN [Concomitant]
  4. PROPOFOL [Concomitant]
  5. TIGECYCLINE [Suspect]
     Indication: ABDOMINAL ABSCESS
     Dosage: 50MG Q12 IV
     Route: 042
     Dates: start: 20111114, end: 20111122
  6. DILAUDID [Concomitant]
  7. ACETAMINOPHEN [Concomitant]

REACTIONS (1)
  - PANCREATITIS [None]
